FAERS Safety Report 10527889 (Version 1)
Quarter: 2014Q4

REPORT INFORMATION
  Report Type: Spontaneous
  Country: US (occurrence: None)
  Receive Date: 20141017
  Receipt Date: 20141017
  Transmission Date: 20150528
  Serious: No
  Sender: FDA-Public Use
  Company Number: None

PATIENT
  Age: 55 Year
  Sex: Male
  Weight: 63.96 kg

DRUGS (1)
  1. AZELASTINE [Suspect]
     Active Substance: AZELASTINE
     Indication: HYPERSENSITIVITY
     Dosage: TWICE A DAY TWICE DAILY NASAL SPRAY
     Route: 045
     Dates: start: 20141011, end: 20141013

REACTIONS (7)
  - Myalgia [None]
  - Throat irritation [None]
  - Nasal congestion [None]
  - Pollakiuria [None]
  - Breast pain [None]
  - Eye pain [None]
  - Back pain [None]

NARRATIVE: CASE EVENT DATE: 20141014
